FAERS Safety Report 17821792 (Version 1)
Quarter: 2020Q2

REPORT INFORMATION
  Report Type: Report from Study
  Country: CA (occurrence: CA)
  Receive Date: 20200525
  Receipt Date: 20200525
  Transmission Date: 20200714
  Serious: Yes (Other)
  Sender: FDA-Public Use
  Company Number: CA-NALPROPION PHARMACEUTICALS INC.-2020-010313

PATIENT

DRUGS (8)
  1. OXYBUTYNIN. [Concomitant]
     Active Substance: OXYBUTYNIN CHLORIDE
     Indication: AUTOMATIC BLADDER
     Dosage: 1 IN 1 D
     Route: 048
  2. CONTRAVE [Suspect]
     Active Substance: BUPROPION HYDROCHLORIDE\NALTREXONE HYDROCHLORIDE
     Indication: WEIGHT CONTROL
     Dosage: FIRST ATTEMPT
     Route: 048
     Dates: end: 201907
  3. CONTRAVE [Suspect]
     Active Substance: BUPROPION HYDROCHLORIDE\NALTREXONE HYDROCHLORIDE
     Dosage: RESTARTED, SECOND ATTEMPT
     Route: 048
     Dates: start: 201910, end: 201912
  4. CONTRAVE [Suspect]
     Active Substance: BUPROPION HYDROCHLORIDE\NALTREXONE HYDROCHLORIDE
     Dosage: START DATE: APPROXIMATELY 18/FEB/2020, ONE TABLET IN THE MORNING AND ONE TABLET IN EVENING
     Route: 048
     Dates: start: 202002, end: 202002
  5. CONTRAVE [Suspect]
     Active Substance: BUPROPION HYDROCHLORIDE\NALTREXONE HYDROCHLORIDE
     Dosage: THIRD ATTEMPT, START DATE: APPROXIMATELY 11/FEB/2020, ONE TABLET IN THE MORNING
     Route: 048
     Dates: start: 202002, end: 202002
  6. CONTRAVE [Suspect]
     Active Substance: BUPROPION HYDROCHLORIDE\NALTREXONE HYDROCHLORIDE
     Dosage: START DATE: APPROXIMATELY 25/FEB/2020, TWO TABLETS IN THE MORNING AND ONE TABLET IN EVENING
     Route: 048
     Dates: start: 202002, end: 202003
  7. LOSARTAN. [Concomitant]
     Active Substance: LOSARTAN
     Indication: HYPERTENSION
     Dosage: 1 IN 1 D
     Route: 048
  8. CONTRAVE [Suspect]
     Active Substance: BUPROPION HYDROCHLORIDE\NALTREXONE HYDROCHLORIDE
     Dosage: START DATE: APPROXIMATELY 03/MAR/2020, TWO TABLETS IN THE MORNING AND TWO TABLETS IN EVENING
     Route: 048
     Dates: start: 202003

REACTIONS (7)
  - Road traffic accident [Unknown]
  - Limb operation [Unknown]
  - Tremor [Not Recovered/Not Resolved]
  - Alopecia [Not Recovered/Not Resolved]
  - Ill-defined disorder [Not Recovered/Not Resolved]
  - Intentional product use issue [Unknown]
  - Condition aggravated [Not Recovered/Not Resolved]

NARRATIVE: CASE EVENT DATE: 2019
